FAERS Safety Report 18807223 (Version 1)
Quarter: 2021Q1

REPORT INFORMATION
  Report Type: Spontaneous
  Country: US (occurrence: US)
  Receive Date: 20210128
  Receipt Date: 20210128
  Transmission Date: 20210419
  Serious: Yes (Hospitalization)
  Sender: FDA-Public Use
  Company Number: None

PATIENT
  Age: 43 Year
  Sex: Female

DRUGS (1)
  1. AMBRISENTAN 5MG TABLETS 30/BO: 5MG [Suspect]
     Active Substance: AMBRISENTAN
     Indication: PULMONARY HYPERTENSION
     Route: 048
     Dates: start: 20201202

REACTIONS (6)
  - Dyspnoea [None]
  - SARS-CoV-2 test positive [None]
  - Asthenia [None]
  - Hyperkalaemia [None]
  - Chest pain [None]
  - Hyponatraemia [None]

NARRATIVE: CASE EVENT DATE: 20210109
